APPROVED DRUG PRODUCT: ALENDRONATE SODIUM
Active Ingredient: ALENDRONATE SODIUM
Strength: EQ 5MG BASE
Dosage Form/Route: TABLET;ORAL
Application: A079049 | Product #003
Applicant: CHARTWELL RX SCIENCES LLC
Approved: Aug 4, 2008 | RLD: No | RS: No | Type: DISCN